FAERS Safety Report 18972374 (Version 1)
Quarter: 2021Q1

REPORT INFORMATION
  Report Type: Other
  Country: AU (occurrence: AU)
  Receive Date: 20210305
  Receipt Date: 20210305
  Transmission Date: 20210420
  Serious: Yes (Hospitalization, Other)
  Sender: FDA-Public Use
  Company Number: AU-NUVO PHARMACEUTICALS INC-2107606

PATIENT
  Age: 65 Year
  Sex: Female

DRUGS (5)
  1. OXYCODONE. [Concomitant]
     Active Substance: OXYCODONE HYDROCHLORIDE
     Route: 065
  2. KETAMINE HYDROCHLORIDE. [Concomitant]
     Active Substance: KETAMINE HYDROCHLORIDE
     Route: 065
  3. METHADONE [Suspect]
     Active Substance: METHADONE HYDROCHLORIDE
     Route: 065
  4. DIAZEPAM. [Suspect]
     Active Substance: DIAZEPAM
     Indication: ANXIETY
     Route: 065
  5. BUPRENORPHINE. [Suspect]
     Active Substance: BUPRENORPHINE
     Route: 065

REACTIONS (7)
  - Depressed level of consciousness [Unknown]
  - Dyspnoea [Unknown]
  - Condition aggravated [Unknown]
  - Sedation [Unknown]
  - Injury [Unknown]
  - Vomiting [Unknown]
  - Fall [Unknown]
